FAERS Safety Report 14878346 (Version 4)
Quarter: 2019Q2

REPORT INFORMATION
  Report Type: Report from Study
  Country: DE (occurrence: DE)
  Receive Date: 20180511
  Receipt Date: 20190413
  Transmission Date: 20190711
  Serious: Yes (Hospitalization, Disabling)
  Sender: FDA-Public Use
  Company Number: DE-ROCHE-2120018

PATIENT
  Age: 75 Year
  Sex: Female

DRUGS (12)
  1. TOCILIZUMAB. [Suspect]
     Active Substance: TOCILIZUMAB
     Indication: RHEUMATOID ARTHRITIS
     Route: 058
     Dates: start: 20180104
  2. ENALAPRIL [Concomitant]
     Active Substance: ENALAPRIL
  3. DIGITOXIN [Concomitant]
     Active Substance: DIGITOXIN
  4. THIAMAZOL [Concomitant]
     Active Substance: METHIMAZOLE
  5. TOCILIZUMAB. [Suspect]
     Active Substance: TOCILIZUMAB
     Indication: RHEUMATOID ARTHRITIS
     Route: 042
     Dates: end: 20170912
  6. METOPROLOL. [Concomitant]
     Active Substance: METOPROLOL
  7. TOREM [Concomitant]
     Active Substance: TORSEMIDE
  8. FALITHROM [Concomitant]
     Active Substance: PHENPROCOUMON
  9. PREDNISOLON [Concomitant]
     Active Substance: PREDNISOLONE
  10. PANTOPRAZOL [Concomitant]
     Active Substance: PANTOPRAZOLE SODIUM
  11. AMLODIPIN [Concomitant]
     Active Substance: AMLODIPINE BESYLATE
  12. GABAPENTIN. [Concomitant]
     Active Substance: GABAPENTIN

REACTIONS (7)
  - Myocardial infarction [Recovered/Resolved]
  - Spinal compression fracture [Recovered/Resolved]
  - Coronary artery disease [Recovered/Resolved]
  - Cardiac failure [Recovered/Resolved]
  - Cardiac failure congestive [Unknown]
  - Hypertensive crisis [Recovered/Resolved]
  - Ischaemic cardiomyopathy [Unknown]

NARRATIVE: CASE EVENT DATE: 20180924
